FAERS Safety Report 17959875 (Version 1)
Quarter: 2020Q2

REPORT INFORMATION
  Report Type: Report from Study
  Country: JP (occurrence: JP)
  Receive Date: 20200630
  Receipt Date: 20200630
  Transmission Date: 20200714
  Serious: Yes (Hospitalization)
  Sender: FDA-Public Use
  Company Number: JP-B.I. PHARMACEUTICALS,INC./RIDGEFIELD-2020-NB-032500

PATIENT
  Age: 79 Year
  Weight: 51.5 kg

DRUGS (4)
  1. OFEV [Suspect]
     Active Substance: NINTEDANIB
     Indication: PULMONARY FIBROSIS
     Route: 048
     Dates: start: 20170518, end: 20200405
  2. DAIPHEN [Suspect]
     Active Substance: SULFAMETHOXAZOLE\TRIMETHOPRIM
     Indication: PULMONARY FIBROSIS
     Route: 048
     Dates: start: 20191223, end: 20200405
  3. PREDONINE [Concomitant]
     Active Substance: PREDNISOLONE
     Indication: PULMONARY FIBROSIS
     Route: 048
     Dates: start: 20180214
  4. NEXIUM [Concomitant]
     Active Substance: ESOMEPRAZOLE MAGNESIUM
     Indication: PULMONARY FIBROSIS
     Route: 048
     Dates: start: 20180214

REACTIONS (1)
  - Acute myeloid leukaemia [Not Recovered/Not Resolved]

NARRATIVE: CASE EVENT DATE: 20200511
